FAERS Safety Report 23242240 (Version 3)
Quarter: 2024Q4

REPORT INFORMATION
  Report Type: Spontaneous
  Country: NL (occurrence: NL)
  Receive Date: 20231129
  Receipt Date: 20241119
  Transmission Date: 20250115
  Serious: Yes (Death, Life-Threatening, Other)
  Sender: MYLAN
  Company Number: NL-GILEAD-2023-0649915

PATIENT
  Age: 71 Year
  Sex: Female

DRUGS (5)
  1. VORICONAZOLE [Suspect]
     Active Substance: VORICONAZOLE
     Indication: Product used for unknown indication
     Dosage: 5.6 MG/L
     Route: 065
  2. AMBISOME [Suspect]
     Active Substance: AMPHOTERICIN B
     Indication: Pyrexia
     Dosage: 5 MILLIGRAM/KILOGRAM
     Route: 042
  3. AMBISOME [Suspect]
     Active Substance: AMPHOTERICIN B
     Dosage: 3 MILLIGRAM/KILOGRAM
     Route: 042
  4. ISAVUCONAZOLE [Concomitant]
     Active Substance: ISAVUCONAZOLE
     Dosage: 5-10 MG/DL
     Route: 065
  5. POSACONAZOLE [Concomitant]
     Active Substance: POSACONAZOLE
     Dosage: UNK
     Route: 065

REACTIONS (8)
  - Cardiac arrest [Fatal]
  - Cortical visual impairment [Unknown]
  - Hallucination, visual [Unknown]
  - Acute kidney injury [Unknown]
  - Febrile neutropenia [Unknown]
  - Nodule [Unknown]
  - Pyrexia [Not Recovered/Not Resolved]
  - Sinusitis [Unknown]

NARRATIVE: CASE EVENT DATE: 20230926
